FAERS Safety Report 7217049-6 (Version None)
Quarter: 2010Q4

REPORT INFORMATION
  Report Type: 
  Country: None (occurrence: None)
  Receive Date: 20101230
  Receipt Date: 20101217
  Transmission Date: 20110411
  Serious: Yes (Other)
  Sender: FDA-Public Use
  Company Number: US-2010-2946

PATIENT

DRUGS (16)
  1. NAVELBINE [Suspect]
     Indication: NEOPLASM MALIGNANT
     Dates: start: 20101119
  2. ONDANSETRON [Concomitant]
  3. ASPIRIN [Concomitant]
  4. DOXAZOSIN [Concomitant]
  5. FINASTERIDE [Concomitant]
  6. FOLIC ACID [Concomitant]
  7. GARLIC [Concomitant]
  8. GLUCOSAMINE W/CHONDROITIN SULF. [Concomitant]
  9. LOVASTATIN [Concomitant]
  10. LYCOPENE [Concomitant]
  11. VITAMINS NOS [Concomitant]
  12. PENCILINA V [Concomitant]
  13. COMPAZINE [Concomitant]
  14. RANITIDINE [Concomitant]
  15. VITAMIN B-12 [Concomitant]
  16. DEXAMETHASONE [Concomitant]

REACTIONS (5)
  - INFUSION SITE ERYTHEMA [None]
  - INFUSION SITE PRURITUS [None]
  - PAIN [None]
  - PHLEBITIS [None]
  - PRODUCT SUBSTITUTION ISSUE [None]
